FAERS Safety Report 20378216 (Version 4)
Quarter: 2022Q1

REPORT INFORMATION
  Report Type: Report from Study
  Country: US (occurrence: US)
  Receive Date: 20220126
  Receipt Date: 20220307
  Transmission Date: 20220423
  Serious: Yes (Death, Hospitalization, Other)
  Sender: FDA-Public Use
  Company Number: US-009507513-2201USA005631

PATIENT
  Sex: Female
  Weight: 84.1 kg

DRUGS (1)
  1. KEYTRUDA [Suspect]
     Active Substance: PEMBROLIZUMAB
     Indication: Ovarian cancer
     Dosage: 200 MILLIGRAM, EVERY 21 DAYS
     Route: 042
     Dates: start: 20211012, end: 20211215

REACTIONS (6)
  - Renal failure [Fatal]
  - Malignant neoplasm progression [Fatal]
  - Central venous catheterisation [Unknown]
  - Adverse event [Unknown]
  - Ill-defined disorder [Unknown]
  - Product use in unapproved indication [Unknown]

NARRATIVE: CASE EVENT DATE: 20210101
